FAERS Safety Report 13372969 (Version 1)
Quarter: 2017Q1

REPORT INFORMATION
  Report Type: Spontaneous
  Country: ES (occurrence: ES)
  Receive Date: 20170327
  Receipt Date: 20170327
  Transmission Date: 20170429
  Serious: Yes (Other)
  Sender: FDA-Public Use
  Company Number: ES-FRESENIUS KABI-FK201702454

PATIENT
  Age: 32 Year
  Sex: Female

DRUGS (2)
  1. LIDOCAINE (MANUFACTURER UNKNOWN) [Suspect]
     Active Substance: LIDOCAINE
     Indication: LOCAL ANAESTHESIA
     Route: 065
  2. LEVOBUPIVACAINE (MANUFACTURER UNKNOWN) [Suspect]
     Active Substance: LEVOBUPIVACAINE
     Indication: LOCAL ANAESTHESIA
     Route: 065

REACTIONS (7)
  - Agitation [Recovered/Resolved]
  - Dysarthria [Recovered/Resolved]
  - Generalised tonic-clonic seizure [Recovered/Resolved]
  - Tachypnoea [Recovered/Resolved]
  - Loss of consciousness [Recovered/Resolved]
  - Hypertension [Recovered/Resolved]
  - Sinus tachycardia [Recovered/Resolved]
